FAERS Safety Report 5484871-6 (Version None)
Quarter: 2007Q4

REPORT INFORMATION
  Report Type: 
  Country: None (occurrence: None)
  Receive Date: 20071010
  Receipt Date: 20071001
  Transmission Date: 20080405
  Serious: Yes (Death, Disabling)
  Sender: FDA-Public Use
  Company Number: 2007PV000039

PATIENT
  Age: 74 Year
  Sex: Male

DRUGS (1)
  1. DEPOCYT [Suspect]
     Indication: MANTLE CELL LYMPHOMA
     Dosage: INTH
     Route: 055

REACTIONS (3)
  - CEREBELLAR SYNDROME [None]
  - LYMPHOMA [None]
  - MALIGNANT NEOPLASM PROGRESSION [None]
